FAERS Safety Report 10337285 (Version 2)
Quarter: 2014Q3

REPORT INFORMATION
  Report Type: Spontaneous
  Country: ZA (occurrence: ZA)
  Receive Date: 20140723
  Receipt Date: 20140801
  Transmission Date: 20150326
  Serious: Yes (Hospitalization)
  Sender: FDA-Public Use
  Company Number: ZA-009507513-1407ZAF008904

PATIENT
  Sex: Male
  Weight: 125 kg

DRUGS (1)
  1. ESMERON [Suspect]
     Active Substance: ROCURONIUM BROMIDE
     Indication: LIPOMA EXCISION
     Dosage: ADMINISTERED 25MG, PROCEDURE LASTED AMOUNT 45-50 MINUTES

REACTIONS (3)
  - Neuromuscular block prolonged [Unknown]
  - Incorrect product storage [Unknown]
  - Dyspnoea [Unknown]
